FAERS Safety Report 4827827-6 (Version None)
Quarter: 2005Q4

REPORT INFORMATION
  Report Type: 
  Country: None (occurrence: None)
  Receive Date: 20051114
  Receipt Date: 20051114
  Transmission Date: 20060501
  Serious: Yes (Other)
  Sender: FDA-Public Use
  Company Number: None

PATIENT
  Age: 83 Year
  Sex: Female
  Weight: 62 kg

DRUGS (4)
  1. VORICONAZOLE 200 MG PFIZER [Suspect]
     Indication: BLOOD CULTURE POSITIVE
     Dosage: 360 MG -LOADING DOSE- BID X 2 DOSES IV
     Route: 042
     Dates: start: 20051021, end: 20051021
  2. VORICONAZOLE 200 MG PFIZER [Suspect]
     Indication: CANDIDIASIS
     Dosage: 360 MG -LOADING DOSE- BID X 2 DOSES IV
     Route: 042
     Dates: start: 20051021, end: 20051021
  3. VORICONAZOLE 200 MG PFIZER [Suspect]
     Indication: BLOOD CULTURE POSITIVE
     Dosage: 240 MG BID IV
     Route: 042
     Dates: start: 20051022, end: 20051031
  4. VORICONAZOLE 200 MG PFIZER [Suspect]
     Indication: CANDIDIASIS
     Dosage: 240 MG BID IV
     Route: 042
     Dates: start: 20051022, end: 20051031

REACTIONS (1)
  - WHITE BLOOD CELL COUNT DECREASED [None]
